FAERS Safety Report 6181965-7 (Version None)
Quarter: 2009Q2

REPORT INFORMATION
  Report Type: 
  Country: None (occurrence: None)
  Receive Date: 20090505
  Receipt Date: 20090420
  Transmission Date: 20091009
  Serious: Yes (Hospitalization)
  Sender: FDA-Public Use
  Company Number: 2009S1006791

PATIENT
  Age: 68 Year
  Sex: Female
  Weight: 83.9154 kg

DRUGS (5)
  1. ALLOPURINOL [Suspect]
     Indication: GOUT
     Dosage: 100 MG; DAILY; ORAL, 200 MG; DAILY; ORAL
     Route: 048
     Dates: start: 20080220, end: 20090301
  2. ALLOPURINOL [Suspect]
     Indication: GOUT
     Dosage: 100 MG; DAILY; ORAL, 200 MG; DAILY; ORAL
     Route: 048
     Dates: start: 20090302, end: 20090309
  3. NORVASC (CON.) [Concomitant]
  4. DIOVAN (CON.) [Concomitant]
  5. ZOLOFT (CON.) [Concomitant]

REACTIONS (7)
  - DEHYDRATION [None]
  - ILL-DEFINED DISORDER [None]
  - LIPIDS INCREASED [None]
  - PYREXIA [None]
  - RENAL IMPAIRMENT [None]
  - STEVENS-JOHNSON SYNDROME [None]
  - WHITE BLOOD CELL COUNT INCREASED [None]
